FAERS Safety Report 7809223-2 (Version None)
Quarter: 2011Q4

REPORT INFORMATION
  Report Type: 
  Country: None (occurrence: None)
  Receive Date: 20111012
  Receipt Date: 20111004
  Transmission Date: 20120403
  Serious: Yes (Congenital Anomaly, Other)
  Sender: FDA-Public Use
  Company Number: US-AMGEN-US248060

PATIENT
  Age: 6 Month
  Sex: Male
  Weight: 3.175 kg

DRUGS (11)
  1. DOXYLAMINE SUCCINATE [Concomitant]
     Dosage: UNK UNK, QMO
     Route: 064
     Dates: start: 20060210, end: 20060925
  2. HALOBETASOL PROPIONATE [Concomitant]
     Dosage: UNK UNK, UNK
  3. ANTIBIOTICS [Concomitant]
     Dosage: UNK UNK, UNK
     Route: 064
     Dates: start: 20060911, end: 20060915
  4. ETANERCEPT [Suspect]
     Dosage: 50 MG, UNK
     Route: 064
     Dates: start: 20050901, end: 20110701
  5. RISEDRONATE SODIUM [Concomitant]
     Dosage: 250 MG, QD
     Route: 064
     Dates: start: 20060404, end: 20060919
  6. ACETAMINOPHEN [Concomitant]
     Dosage: UNK UNK, QD
     Route: 064
     Dates: start: 20060923, end: 20060923
  7. PRENATAL VITAMINS [Concomitant]
     Dosage: UNK UNK, QD
     Route: 064
     Dates: start: 20060404, end: 20061030
  8. MEDINITE [Concomitant]
     Dosage: UNK UNK, QD
     Route: 064
     Dates: start: 20060214, end: 20060214
  9. ENSURE PLUS [Concomitant]
     Dosage: UNK UNK, UNK
     Route: 064
     Dates: start: 20060403, end: 20060503
  10. ANESTHETICS [Concomitant]
     Dosage: UNK UNK, UNK
     Route: 064
     Dates: start: 20060626, end: 20060626
  11. BUPROPION HCL [Concomitant]
     Dosage: 150 MG, QD
     Route: 064
     Dates: start: 20060911, end: 20061015

REACTIONS (4)
  - SCROTAL SWELLING [None]
  - INGUINAL HERNIA [None]
  - HYDROCELE [None]
  - CONTUSION [None]
